FAERS Safety Report 14386836 (Version 2)
Quarter: 2018Q4

REPORT INFORMATION
  Report Type: Spontaneous
  Country: US (occurrence: US)
  Receive Date: 20180115
  Receipt Date: 20181119
  Transmission Date: 20190204
  Serious: Yes (Other)
  Sender: FDA-Public Use
  Company Number: US-SA-2017SA163632

PATIENT
  Age: 70 Year
  Sex: Female
  Weight: 72.57 kg

DRUGS (20)
  1. ATENOLOL. [Concomitant]
     Active Substance: ATENOLOL
     Dosage: 50 MG,UNK
     Route: 065
     Dates: start: 20070417, end: 20071217
  2. MICRONASE [Concomitant]
     Active Substance: GLYBURIDE
     Dosage: 2.5 MG,UNK
     Route: 065
  3. LISINOPRIL. [Concomitant]
     Active Substance: LISINOPRIL
     Dosage: 10 MG,QD
     Route: 065
  4. ZOCOR [Concomitant]
     Active Substance: SIMVASTATIN
     Dosage: 20 MG,HS
     Route: 065
  5. NIFEDICAL XL [Concomitant]
     Active Substance: NIFEDIPINE
     Dosage: 60 MG,UNK
     Route: 065
     Dates: start: 20070417, end: 20071217
  6. MOTRIN [Concomitant]
     Active Substance: IBUPROFEN
     Dosage: 600 MG,QID
     Route: 065
  7. TAXOTERE [Suspect]
     Active Substance: DOCETAXEL
     Dosage: 20 MG, Q3W
     Dates: start: 20090424, end: 20090424
  8. ULTRAM [TRAMADOL HYDROCHLORIDE] [Concomitant]
     Dosage: 50 MG,BID
     Route: 048
  9. NEOSAR [Concomitant]
     Active Substance: CYCLOPHOSPHAMIDE
  10. TAXOTERE [Suspect]
     Active Substance: DOCETAXEL
     Indication: BREAST CANCER
     Dosage: UNK UNK,QCY
     Route: 042
     Dates: start: 20090218, end: 20090218
  11. TAXOTERE [Suspect]
     Active Substance: DOCETAXEL
     Dosage: UNK UNK,QCY
     Route: 042
     Dates: start: 20090518, end: 20090518
  12. ALTACE [Concomitant]
     Active Substance: RAMIPRIL
     Dosage: 5 MG,UNK
     Route: 065
  13. CYTOXAN [Concomitant]
     Active Substance: CYCLOPHOSPHAMIDE
  14. NASONEX [Concomitant]
     Active Substance: MOMETASONE FUROATE
     Dosage: 50 UG,UNK
     Route: 065
     Dates: start: 20070417, end: 20071217
  15. ACETYLSALICYLIC ACID [Concomitant]
     Active Substance: ASPIRIN
  16. CLONIDINE HYDROCHLORIDE. [Concomitant]
     Active Substance: CLONIDINE HYDROCHLORIDE
     Dosage: .2 MG,UNK
     Route: 065
     Dates: start: 20070417, end: 20071217
  17. ATENOLOL;CHLORTALIDONE [Concomitant]
     Dosage: UNK UNK,QD
     Route: 048
  18. ZOFRAN [ONDANSETRON] [Concomitant]
     Dosage: 2 MG,UNK
     Route: 065
  19. GLIMEPIRIDE. [Concomitant]
     Active Substance: GLIMEPIRIDE
     Dosage: 2 MG,QD
     Route: 048
  20. ADALAT [Concomitant]
     Active Substance: NIFEDIPINE

REACTIONS (5)
  - Emotional distress [Unknown]
  - Anxiety [Unknown]
  - Impaired quality of life [Unknown]
  - Pain [Unknown]
  - Alopecia [Not Recovered/Not Resolved]
